FAERS Safety Report 4553183-7 (Version None)
Quarter: 2005Q1

REPORT INFORMATION
  Report Type: 
  Country: None (occurrence: None)
  Receive Date: 20050112
  Receipt Date: 20050112
  Transmission Date: 20050727
  Serious: Yes (Hospitalization)
  Sender: FDA-Public Use
  Company Number: None

PATIENT
  Age: 13 Year
  Sex: Female
  Weight: 98.3 kg

DRUGS (8)
  1. RITUXIMAB [Suspect]
     Indication: JUVENILE ARTHRITIS
     Dosage: 680 MG IV X ONE
     Route: 042
     Dates: start: 20041103
  2. PREDNISONE [Concomitant]
  3. INDOMETHACIN [Concomitant]
  4. CELEBREX [Concomitant]
  5. ZYRTEC [Concomitant]
  6. ARAVA [Concomitant]
  7. SUCROLFATE [Concomitant]
  8. ALBUTEROL [Concomitant]

REACTIONS (5)
  - APNOEA [None]
  - EYE MOVEMENT DISORDER [None]
  - HYPERHIDROSIS [None]
  - INFUSION RELATED REACTION [None]
  - RESPIRATORY DISTRESS [None]
